FAERS Safety Report 7361343-5 (Version None)
Quarter: 2011Q1

REPORT INFORMATION
  Report Type: 
  Country: None (occurrence: None)
  Receive Date: 20110318
  Receipt Date: 20110315
  Transmission Date: 20110831
  Serious: Yes (Death, Hospitalization)
  Sender: FDA-Public Use
  Company Number: B0705815A

PATIENT
  Sex: Female

DRUGS (14)
  1. NEXIUM [Concomitant]
     Route: 065
  2. LASILIX RETARD [Concomitant]
     Route: 065
  3. AMLOR [Concomitant]
     Route: 065
  4. AUGMENTIN '125' [Suspect]
     Indication: LUNG DISORDER
     Dosage: 1G THREE TIMES PER DAY
     Route: 042
     Dates: start: 20101105, end: 20101107
  5. AUGMENTIN '125' [Suspect]
     Indication: PRODUCT USED FOR UNKNOWN INDICATION
     Dosage: 1G THREE TIMES PER DAY
     Route: 042
     Dates: start: 20101120, end: 20101121
  6. INSULATARD [Concomitant]
     Route: 065
  7. BUFLOMEDIL [Concomitant]
     Route: 065
  8. ACETAMINOPHEN [Concomitant]
     Route: 042
     Dates: start: 20101104
  9. AUGMENTIN [Suspect]
     Indication: LUNG DISORDER
     Dosage: 1G THREE TIMES PER DAY
     Route: 048
     Dates: start: 20101031, end: 20101104
  10. CALCIPARINE [Suspect]
     Indication: PULMONARY EMBOLISM
     Dosage: 20000IU TWICE PER DAY
     Route: 058
     Dates: start: 20101029, end: 20101102
  11. PREVISCAN [Suspect]
     Indication: PULMONARY EMBOLISM
     Dosage: 20MG PER DAY
     Route: 048
     Dates: start: 20101029, end: 20101104
  12. CARDENSIEL [Concomitant]
     Route: 048
  13. DOMPERIDONE [Concomitant]
     Dosage: 3UNIT PER DAY
     Route: 065
  14. NOLVADEX [Concomitant]
     Route: 065

REACTIONS (10)
  - BREAST HAEMATOMA [None]
  - STEVENS-JOHNSON SYNDROME [None]
  - ANAEMIA [None]
  - DRUG INTERACTION [None]
  - TOXIC SKIN ERUPTION [None]
  - OVERDOSE [None]
  - DERMATITIS BULLOUS [None]
  - RASH ERYTHEMATOUS [None]
  - MUCOUS MEMBRANE DISORDER [None]
  - HYPOVOLAEMIC SHOCK [None]
